FAERS Safety Report 16926950 (Version 1)
Quarter: 2019Q4

REPORT INFORMATION
  Report Type: Spontaneous
  Country: CN (occurrence: CN)
  Receive Date: 20191016
  Receipt Date: 20191016
  Transmission Date: 20200122
  Serious: Yes (Other)
  Sender: FDA-Public Use
  Company Number: CN-BAYER-2019-186010

PATIENT
  Age: 59 Year
  Sex: Female

DRUGS (7)
  1. OMEPRAZOLE. [Concomitant]
     Active Substance: OMEPRAZOLE
     Indication: HELICOBACTER INFECTION
     Dosage: 20 MG, BID
  2. COLLOIDAL BISMUTH PECTIN [Concomitant]
     Active Substance: BISMUTH
     Indication: HELICOBACTER INFECTION
     Dosage: 200 MG, BID
  3. GLICLAZIDE [Interacting]
     Active Substance: GLICLAZIDE
  4. METFORMIN [Interacting]
     Active Substance: METFORMIN HYDROCHLORIDE
  5. ACARBOSE. [Suspect]
     Active Substance: ACARBOSE
  6. CLARITHROMYCIN. [Interacting]
     Active Substance: CLARITHROMYCIN
     Indication: HELICOBACTER INFECTION
     Dosage: 500 MG, BID
  7. AMOXICILLIN. [Concomitant]
     Active Substance: AMOXICILLIN
     Indication: HELICOBACTER INFECTION
     Dosage: 1000 MG, BID

REACTIONS (4)
  - Cold sweat [None]
  - Seizure [None]
  - Hypoglycaemia [Recovered/Resolved]
  - Drug interaction [None]
